FAERS Safety Report 7190659-0 (Version None)
Quarter: 2010Q4

REPORT INFORMATION
  Report Type: 
  Country: None (occurrence: None)
  Receive Date: 20101221
  Receipt Date: 20101221
  Transmission Date: 20110411
  Serious: Yes (Hospitalization)
  Sender: FDA-Public Use
  Company Number: None

PATIENT
  Age: 53 Year
  Sex: Female

DRUGS (4)
  1. TRAMADOL HCL [Suspect]
     Indication: PAIN
     Dosage: 1 TABLET EVERY 6 HOURS
     Dates: start: 20101211, end: 20101213
  2. PAXIL CR [Concomitant]
  3. SYNTHROID [Concomitant]
  4. DEPAKOTE ER [Concomitant]

REACTIONS (1)
  - CONVULSION [None]
